FAERS Safety Report 7204138-5 (Version None)
Quarter: 2010Q4

REPORT INFORMATION
  Report Type: 
  Country: None (occurrence: None)
  Receive Date: 20101230
  Receipt Date: 20101220
  Transmission Date: 20110411
  Serious: Yes (Other)
  Sender: FDA-Public Use
  Company Number: US-SANOFI-AVENTIS-2010SA077491

PATIENT
  Age: 71 Year
  Sex: Female
  Weight: 113 kg

DRUGS (2)
  1. LOVENOX [Suspect]
     Indication: PULMONARY EMBOLISM
     Route: 065
     Dates: start: 20101212
  2. METOPROLOL [Concomitant]

REACTIONS (1)
  - KIDNEY INFECTION [None]
